FAERS Safety Report 5559215-1 (Version None)
Quarter: 2007Q4

REPORT INFORMATION
  Report Type: 
  Country: None (occurrence: None)
  Receive Date: 20071214
  Receipt Date: 20070925
  Transmission Date: 20080405
  Serious: No
  Sender: FDA-Public Use
  Company Number: US-ABBOTT-07P-163-0418333-00

PATIENT
  Sex: Female

DRUGS (7)
  1. HUMIRA [Suspect]
     Indication: PSORIASIS
     Route: 058
     Dates: start: 20070916, end: 20070928
  2. PSEUDOPHEDRINE FREE COLD MEDICATION [Suspect]
     Indication: NASOPHARYNGITIS
     Route: 048
     Dates: start: 20070921, end: 20070928
  3. PSEUDOPHEDRINE FREE COLD MEDICATION [Suspect]
     Indication: RESPIRATORY TRACT CONGESTION
  4. PROTEIN DRINK [Suspect]
     Indication: SUPPLEMENTATION THERAPY
     Route: 048
     Dates: start: 20070914, end: 20070928
  5. LANSOPRAZOLE [Concomitant]
     Indication: DRUG USE FOR UNKNOWN INDICATION
  6. VENLAFAXINE HCL [Concomitant]
     Indication: DRUG USE FOR UNKNOWN INDICATION
  7. ESTRADIL [Concomitant]
     Indication: DRUG USE FOR UNKNOWN INDICATION

REACTIONS (6)
  - ALOPECIA [None]
  - DYSPNOEA [None]
  - NASOPHARYNGITIS [None]
  - RASH [None]
  - RESPIRATORY TRACT CONGESTION [None]
  - URTICARIA [None]
